FAERS Safety Report 9140206 (Version 2)
Quarter: 2013Q2

REPORT INFORMATION
  Report Type: Spontaneous
  Country: JP (occurrence: JP)
  Receive Date: 20130305
  Receipt Date: 20130411
  Transmission Date: 20140414
  Serious: Yes (Life-Threatening)
  Sender: FDA-Public Use
  Company Number: JP-ASTRAZENECA-2013SE07622

PATIENT
  Age: 23616 Day
  Sex: Female
  Weight: 25 kg

DRUGS (11)
  1. SEROQUEL [Suspect]
     Indication: SCHIZOPHRENIA
     Route: 048
     Dates: start: 20121009, end: 20121009
  2. SEROQUEL [Interacting]
     Indication: SCHIZOPHRENIA
     Route: 048
     Dates: start: 20121011, end: 20121013
  3. SEROQUEL [Interacting]
     Indication: SCHIZOPHRENIA
     Route: 048
     Dates: start: 20121014, end: 20121022
  4. SEROQUEL [Interacting]
     Indication: SCHIZOPHRENIA
     Route: 048
     Dates: start: 20121023, end: 20121111
  5. SEROQUEL [Interacting]
     Indication: SCHIZOPHRENIA
     Route: 048
     Dates: start: 20121112, end: 20121115
  6. SEROQUEL [Interacting]
     Indication: SCHIZOPHRENIA
     Route: 048
  7. ZYPREXA [Interacting]
     Indication: SCHIZOPHRENIA
     Route: 048
     Dates: start: 20120421, end: 20121115
  8. ZYPREXA [Interacting]
     Indication: SCHIZOPHRENIA
     Route: 048
  9. VEGETAMIN A [Concomitant]
     Indication: SCHIZOPHRENIA
     Dates: start: 20120303, end: 20121115
  10. NEOPERIDOL [Concomitant]
     Indication: SCHIZOPHRENIA
     Dates: end: 20121101
  11. FLUNITRAZEPAM [Concomitant]
     Indication: SCHIZOPHRENIA
     Dates: start: 20120303, end: 20121115

REACTIONS (6)
  - Drug interaction [Recovering/Resolving]
  - Hypoglycaemia [Recovered/Resolved]
  - Drug withdrawal convulsions [Unknown]
  - Altered state of consciousness [Unknown]
  - Ileus [Recovering/Resolving]
  - Intentional drug misuse [Unknown]
